FAERS Safety Report 4667230-5 (Version None)
Quarter: 2005Q2

REPORT INFORMATION
  Report Type: 
  Country: None (occurrence: None)
  Receive Date: 20050520
  Receipt Date: 20050113
  Transmission Date: 20051028
  Serious: Yes (Hospitalization, Other)
  Sender: FDA-Public Use
  Company Number: US-BRISTOL-MYERS SQUIBB COMPANY-12831889

PATIENT
  Age: 61 Year
  Sex: Male
  Weight: 58 kg

DRUGS (5)
  1. SINEMET [Suspect]
     Route: 048
  2. CARBIDOPA AND LEVODOPA [Suspect]
  3. CLONAZEPAM [Concomitant]
  4. ENTACAPONE [Concomitant]
  5. SERTRALINE HCL [Concomitant]

REACTIONS (1)
  - DELIRIUM [None]
